FAERS Safety Report 23307068 (Version 3)
Quarter: 2024Q2

REPORT INFORMATION
  Report Type: Report from Study
  Country: JP (occurrence: JP)
  Receive Date: 20231218
  Receipt Date: 20240424
  Transmission Date: 20240716
  Serious: Yes (Other)
  Sender: FDA-Public Use
  Company Number: JP-ASTELLAS-2022JP008764

PATIENT
  Age: 73 Year
  Sex: Female
  Weight: 46 kg

DRUGS (13)
  1. ENFORTUMAB VEDOTIN-EJFV [Suspect]
     Active Substance: ENFORTUMAB VEDOTIN-EJFV
     Indication: Transitional cell carcinoma
     Route: 041
     Dates: start: 20220216
  2. ENFORTUMAB VEDOTIN-EJFV [Suspect]
     Active Substance: ENFORTUMAB VEDOTIN-EJFV
     Dosage: 1.0 MG/KG, UNKNOWN FREQ.
     Route: 042
     Dates: start: 20230411
  3. ENFORTUMAB VEDOTIN-EJFV [Suspect]
     Active Substance: ENFORTUMAB VEDOTIN-EJFV
     Dosage: UNK UNK, UNKNOWN FREQ.
     Route: 042
  4. PEMBROLIZUMAB [Concomitant]
     Active Substance: PEMBROLIZUMAB
     Indication: Transitional cell carcinoma
     Dosage: UNK UNK, UNKNOWN FREQ.
     Route: 065
     Dates: start: 20211117, end: 20220118
  5. PEMBROLIZUMAB [Concomitant]
     Active Substance: PEMBROLIZUMAB
     Dosage: UNK UNK, UNKNOWN FREQ.
     Route: 065
  6. SITAGLIPTIN [Concomitant]
     Active Substance: SITAGLIPTIN
     Indication: Diabetes mellitus
     Dosage: UNK UNK, UNKNOWN FREQ.
     Route: 065
  7. HEPARINOID [Concomitant]
     Indication: Rash
     Dosage: A FEW G (UNKNOWN FOR HOW MANY GRAMS AS APPLYING TO BODY), UNKNOWN FREQ.
     Route: 050
     Dates: start: 20220216
  8. HEPARINOID [Concomitant]
     Indication: Pruritus
  9. DESLORATADINE [Concomitant]
     Active Substance: DESLORATADINE
     Indication: Rash
     Route: 048
     Dates: start: 20220301, end: 20220413
  10. DESLORATADINE [Concomitant]
     Active Substance: DESLORATADINE
     Indication: Pruritus
  11. HYALURONATE SODIUM [Concomitant]
     Active Substance: HYALURONATE SODIUM
     Indication: Dry eye
     Dosage: 1 DROP, AS NEEDED (APPLY EYE DROPS WHEN DRY)
     Route: 047
     Dates: start: 20220816
  12. CLOBETASOL [Concomitant]
     Active Substance: CLOBETASOL
     Indication: Eczema
     Dosage: UNK UNK, APPROPRIATE DOSE, ONCE DAILY
     Route: 003
     Dates: start: 20220823, end: 20240305
  13. BILASTINE [Concomitant]
     Active Substance: BILASTINE
     Indication: Eczema
     Route: 048
     Dates: start: 20220824

REACTIONS (11)
  - Diabetes mellitus [Unknown]
  - Rash [Unknown]
  - Pneumonia [Recovered/Resolved]
  - Neuropathy peripheral [Recovered/Resolved]
  - Eczema [Recovered/Resolved]
  - Visual acuity reduced [Recovered/Resolved]
  - Pruritus [Recovered/Resolved]
  - Taste disorder [Not Recovered/Not Resolved]
  - Rash [Recovered/Resolved]
  - Alopecia [Unknown]
  - Dry eye [Recovered/Resolved]

NARRATIVE: CASE EVENT DATE: 20220301
